FAERS Safety Report 19174823 (Version 1)
Quarter: 2021Q2

REPORT INFORMATION
  Report Type: Spontaneous
  Country: IL (occurrence: IL)
  Receive Date: 20210423
  Receipt Date: 20210423
  Transmission Date: 20210717
  Serious: Yes (Other)
  Sender: FDA-Public Use
  Company Number: IL-AMERICAN REGENT INC-2021001005

PATIENT
  Age: 0 Year
  Sex: Male
  Weight: 3.9 kg

DRUGS (1)
  1. FERINJECT [Suspect]
     Active Substance: FERRIC CARBOXYMALTOSE
     Indication: PRODUCT USED FOR UNKNOWN INDICATION
     Dosage: 1000 MG
     Route: 064
     Dates: start: 20201223, end: 20201223

REACTIONS (2)
  - Foetal exposure during pregnancy [Unknown]
  - Infantile apnoea [Unknown]

NARRATIVE: CASE EVENT DATE: 20201223
